FAERS Safety Report 19035103 (Version 1)
Quarter: 2021Q1

REPORT INFORMATION
  Report Type: Other
  Country: US (occurrence: US)
  Receive Date: 20210320
  Receipt Date: 20210320
  Transmission Date: 20210420
  Serious: No
  Sender: FDA-Public Use
  Company Number: US-ACORDA-ACO_167050_2020

PATIENT
  Sex: Male

DRUGS (3)
  1. INBRIJA [Suspect]
     Active Substance: LEVODOPA
     Indication: PARKINSON^S DISEASE
     Dosage: 2 DOSAGE FORM, BID (NOT TO EXCEED 5 DOSES A DAY)
     Dates: start: 2019
  2. RYTARY [Concomitant]
     Active Substance: CARBIDOPA\LEVODOPA
     Indication: PRODUCT USED FOR UNKNOWN INDICATION
     Dosage: UNK
     Route: 065
  3. INBRIJA [Suspect]
     Active Substance: LEVODOPA
     Indication: ON AND OFF PHENOMENON

REACTIONS (6)
  - Product dispensing error [Unknown]
  - Device difficult to use [Unknown]
  - Retching [Recovering/Resolving]
  - Therapeutic product effect variable [Unknown]
  - Product residue present [Unknown]
  - Cough [Recovering/Resolving]
